FAERS Safety Report 4277751-5 (Version None)
Quarter: 2004Q1

REPORT INFORMATION
  Report Type: 
  Country: None (occurrence: None)
  Receive Date: 20040121
  Receipt Date: 20040113
  Transmission Date: 20041129
  Serious: Yes (Hospitalization, Other)
  Sender: FDA-Public Use
  Company Number: 2004002098

PATIENT
  Age: 70 Year
  Sex: Male

DRUGS (9)
  1. CETIRIZINE HCL [Suspect]
     Indication: PRURITUS
     Dosage: 10MG, ORAL
     Route: 048
     Dates: start: 20031103, end: 20031118
  2. WARFARIN SODIUM [Suspect]
     Indication: ATRIAL FIBRILLATION
     Dosage: 1.5 MG, ORAL
     Route: 048
  3. ALLOPURINOL [Concomitant]
  4. ISOSORBIDE MONONITRATE [Concomitant]
  5. PAROXETINE HCL [Concomitant]
  6. SIMVASTATIN [Concomitant]
  7. MALATHION (MALATHION) [Concomitant]
  8. TEMAZEPAM [Concomitant]
  9. FUROSEMIDE [Concomitant]

REACTIONS (3)
  - CHOLELITHIASIS [None]
  - HEPATIC FUNCTION ABNORMAL [None]
  - INTERNATIONAL NORMALISED RATIO INCREASED [None]
